FAERS Safety Report 4674882-2 (Version None)
Quarter: 2005Q2

REPORT INFORMATION
  Report Type: 
  Country: None (occurrence: None)
  Receive Date: 20050525
  Receipt Date: 20050512
  Transmission Date: 20051028
  Serious: Yes (Death)
  Sender: FDA-Public Use
  Company Number: CLOF-10009

PATIENT
  Age: 72 Year
  Sex: Male

DRUGS (8)
  1. CLOFARABINE [Suspect]
     Indication: ACUTE MYELOID LEUKAEMIA
     Dosage: 52.8 MG QD X 5 IV
     Route: 042
     Dates: start: 20050426, end: 20050430
  2. CIPROFLOXACIN [Concomitant]
  3. ITRACONAZOLE [Concomitant]
  4. ACYCLOVIR [Concomitant]
  5. ALLOPURINOL [Concomitant]
  6. ONDANSETRON [Concomitant]
  7. TRAMADOL HCL [Concomitant]
  8. MEROPENEM [Concomitant]

REACTIONS (9)
  - ANURIA [None]
  - DISORIENTATION [None]
  - HAEMODIALYSIS [None]
  - HYPOTENSION [None]
  - NEUTROPENIA [None]
  - RENAL FAILURE ACUTE [None]
  - SEPSIS [None]
  - SOMNOLENCE [None]
  - THERAPY NON-RESPONDER [None]
